FAERS Safety Report 19361322 (Version 2)
Quarter: 2021Q2

REPORT INFORMATION
  Report Type: Spontaneous
  Country: US (occurrence: US)
  Receive Date: 20210601
  Receipt Date: 20210617
  Transmission Date: 20210717
  Serious: Yes (Life-Threatening, Hospitalization, Other)
  Sender: FDA-Public Use
  Company Number: US-PFIZER INC-2021574984

PATIENT
  Age: 60 Year
  Sex: Male

DRUGS (2)
  1. MIDAZOLAM. [Concomitant]
     Active Substance: MIDAZOLAM
     Indication: SEDATION
     Route: 042
  2. FENTANYL CITRATE. [Suspect]
     Active Substance: FENTANYL CITRATE
     Indication: SEDATION
     Dosage: 100 UG
     Route: 042

REACTIONS (4)
  - Abdominal rigidity [Recovered/Resolved]
  - Respiratory failure [Recovered/Resolved]
  - Laryngospasm [Recovered/Resolved]
  - Muscle rigidity [Recovered/Resolved]
